FAERS Safety Report 26016183 (Version 3)
Quarter: 2025Q4

REPORT INFORMATION
  Report Type: Spontaneous
  Country: UA (occurrence: UA)
  Receive Date: 20251110
  Receipt Date: 20251119
  Transmission Date: 20260117
  Serious: Yes (Death, Other)
  Sender: ASTELLAS
  Company Number: UA-ASTELLAS-2025-AER-060813

PATIENT
  Age: 72 Year
  Sex: Male

DRUGS (4)
  1. XTANDI [Suspect]
     Active Substance: ENZALUTAMIDE
     Indication: Prostate cancer
     Dosage: IN THE EVENING?40 MG 4 CAPS
     Route: 048
     Dates: start: 20251002
  2. WARFARIN [Concomitant]
     Active Substance: WARFARIN
     Indication: Product used for unknown indication
     Route: 065
  3. WARFARIN [Concomitant]
     Active Substance: WARFARIN
     Dosage: ADJUSTED THE DOSE
     Route: 065
  4. GOSERELIN [Concomitant]
     Active Substance: GOSERELIN
     Indication: Prostate cancer
     Dosage: IN THE MORNING
     Route: 065
     Dates: start: 20251002

REACTIONS (2)
  - Hallucination, visual [Fatal]
  - Pulmonary oedema [Fatal]

NARRATIVE: CASE EVENT DATE: 20251101
